FAERS Safety Report 4467308-5 (Version None)
Quarter: 2004Q4

REPORT INFORMATION
  Report Type: 
  Country: None (occurrence: None)
  Receive Date: 20041006
  Receipt Date: 20040927
  Transmission Date: 20050328
  Serious: Yes (Hospitalization)
  Sender: FDA-Public Use
  Company Number: SE-GLAXOSMITHKLINE-B0346893A

PATIENT
  Age: 59 Year
  Sex: Female

DRUGS (15)
  1. VALTREX [Suspect]
     Indication: HERPES VIRUS INFECTION
     Dosage: 6G UNKNOWN
     Route: 048
     Dates: start: 19990101, end: 20040627
  2. ZOVIRAX [Suspect]
     Indication: MENINGITIS
     Route: 065
  3. EFFEXOR [Concomitant]
     Route: 065
  4. KALCIPOS [Concomitant]
     Route: 065
  5. AMITRIPTYLINE HCL [Concomitant]
     Dosage: 50MG PER DAY
     Route: 065
  6. HIPREX [Concomitant]
     Dosage: 1G PER DAY
     Route: 065
  7. METOPROLOL SUCCINATE [Concomitant]
     Route: 065
  8. BACLOFEN [Concomitant]
     Route: 065
  9. RENITEC [Concomitant]
     Dosage: 10MG PER DAY
     Route: 065
  10. DIMETIKON [Concomitant]
     Dosage: 200MG PER DAY
     Route: 065
  11. NEURONTIN [Concomitant]
     Route: 065
  12. SINGULAIR [Concomitant]
     Dosage: 10MG PER DAY
     Route: 065
  13. SERETIDE [Concomitant]
     Route: 065
  14. FUROSEMIDE [Concomitant]
     Dosage: 40MG PER DAY
  15. ALVEDON FORTE [Concomitant]
     Dosage: 1G PER DAY

REACTIONS (6)
  - BLOOD CREATININE INCREASED [None]
  - DRUG THERAPEUTIC INCOMPATIBILITY [None]
  - HEADACHE [None]
  - NAUSEA [None]
  - RENAL FAILURE [None]
  - SOMNOLENCE [None]
